APPROVED DRUG PRODUCT: LO-MALMOREDE
Active Ingredient: ETHINYL ESTRADIOL; ETHYNODIOL DIACETATE
Strength: 0.035MG;1MG
Dosage Form/Route: TABLET;ORAL-28
Application: A209548 | Product #001 | TE Code: AB
Applicant: NOVAST LABORATORIES LTD
Approved: Feb 11, 2019 | RLD: No | RS: No | Type: RX